FAERS Safety Report 8275162-9 (Version None)
Quarter: 2012Q2

REPORT INFORMATION
  Report Type: 
  Country: None (occurrence: None)
  Receive Date: 20120411
  Receipt Date: 20120404
  Transmission Date: 20120825
  Serious: Yes (Other)
  Sender: FDA-Public Use
  Company Number: PHHY2012MY029534

PATIENT
  Age: 50 Year
  Sex: Female

DRUGS (2)
  1. METHOTREXATE [Suspect]
     Dosage: 7.5 MG, BID
  2. METHOTREXATE [Suspect]
     Dosage: 2.5 MG, BID

REACTIONS (11)
  - SKIN ULCER [None]
  - SKIN PLAQUE [None]
  - ALANINE AMINOTRANSFERASE INCREASED [None]
  - DEHYDRATION [None]
  - ERYTHEMA [None]
  - PSORIASIS [None]
  - PAIN [None]
  - SKIN LESION [None]
  - PYREXIA [None]
  - PANCYTOPENIA [None]
  - PAIN OF SKIN [None]
